FAERS Safety Report 12742825 (Version 1)
Quarter: 2016Q3

REPORT INFORMATION
  Report Type: Spontaneous
  Country: CO (occurrence: CO)
  Receive Date: 20160914
  Receipt Date: 20160914
  Transmission Date: 20161109
  Serious: Yes (Other)
  Sender: FDA-Public Use
  Company Number: CO-PFIZER INC-2016429369

PATIENT
  Age: 10 Year
  Sex: Male
  Weight: 25 kg

DRUGS (1)
  1. GENOTROPIN [Suspect]
     Active Substance: SOMATROPIN
     Indication: GROWTH RETARDATION
     Dosage: 1.0 MG, DAILY
     Route: 058
     Dates: end: 201512

REACTIONS (4)
  - Product use issue [Unknown]
  - Tonsillitis [Unknown]
  - Ear infection [Unknown]
  - Hyperthermia [Unknown]

NARRATIVE: CASE EVENT DATE: 201608
